FAERS Safety Report 8503896-7 (Version None)
Quarter: 2012Q3

REPORT INFORMATION
  Report Type: 
  Country: None (occurrence: None)
  Receive Date: 20120711
  Receipt Date: 20120703
  Transmission Date: 20120928
  Serious: Yes (Hospitalization, Other)
  Sender: FDA-Public Use
  Company Number: IT-BRISTOL-MYERS SQUIBB COMPANY-15744683

PATIENT
  Age: 45 Year
  Sex: Female

DRUGS (4)
  1. FOTEMUSTINE [Suspect]
     Indication: MALIGNANT MELANOMA
     Route: 042
     Dates: start: 20110308
  2. IPILIMUMAB [Suspect]
     Indication: MALIGNANT MELANOMA
     Route: 042
     Dates: start: 20110308
  3. LANSOPRAZOLE [Concomitant]
     Dates: start: 20110228
  4. PREDNISONE [Concomitant]
     Dates: start: 20110412

REACTIONS (3)
  - NEUTROPHIL COUNT DECREASED [None]
  - PLATELET COUNT DECREASED [None]
  - SMALL INTESTINAL OBSTRUCTION [None]
